FAERS Safety Report 16755175 (Version 1)
Quarter: 2019Q3

REPORT INFORMATION
  Report Type: Spontaneous
  Country: US (occurrence: US)
  Receive Date: 20190711
  Receipt Date: 20190711
  Transmission Date: 20191005
  Serious: Yes (Hospitalization)
  Sender: FDA-Public Use
  Company Number: None

PATIENT
  Age: 60 Year
  Sex: Male
  Weight: 108.8 kg

DRUGS (2)
  1. VANCOMYCIN 5GM VIAL HOSPIRA [Suspect]
     Active Substance: VANCOMYCIN
     Indication: ABSCESS
     Route: 042
     Dates: start: 20190624, end: 20190707
  2. VANCOMYCIN 5GM VIAL HOSPIRA [Suspect]
     Active Substance: VANCOMYCIN
     Indication: HIP ARTHROPLASTY
     Route: 042
     Dates: start: 20190624, end: 20190707

REACTIONS (1)
  - Acute kidney injury [None]

NARRATIVE: CASE EVENT DATE: 20190707
